FAERS Safety Report 4920220-7 (Version None)
Quarter: 2006Q1

REPORT INFORMATION
  Report Type: 
  Country: None (occurrence: None)
  Receive Date: 20060217
  Receipt Date: 20060208
  Transmission Date: 20060701
  Serious: Yes (Hospitalization)
  Sender: FDA-Public Use
  Company Number: GXKR2006TW00864

PATIENT
  Age: 74 Year
  Sex: Male

DRUGS (1)
  1. CIPROFLOXACIN [Suspect]
     Dosage: 500 MG,BID,ORAL
     Route: 048

REACTIONS (6)
  - HAEMODIALYSIS [None]
  - NAUSEA [None]
  - NEPHRITIS INTERSTITIAL [None]
  - OLIGURIA [None]
  - TACHYPNOEA [None]
  - VOMITING [None]
